FAERS Safety Report 5046881-2 (Version None)
Quarter: 2006Q3

REPORT INFORMATION
  Report Type: 
  Country: None (occurrence: None)
  Receive Date: 20060710
  Receipt Date: 20060630
  Transmission Date: 20061208
  Serious: Yes (Hospitalization)
  Sender: FDA-Public Use
  Company Number: GB-ABBOTT-06P-167-0337376-00

PATIENT
  Sex: Female
  Weight: 69 kg

DRUGS (6)
  1. HUMIRA [Suspect]
     Indication: RHEUMATOID ARTHRITIS
     Dates: start: 20050314, end: 20051208
  2. CELECOXIB [Concomitant]
     Indication: DRUG USE FOR UNKNOWN INDICATION
  3. HRT [Concomitant]
     Indication: DRUG USE FOR UNKNOWN INDICATION
  4. ESOMEPRAZOLE [Concomitant]
     Indication: DRUG USE FOR UNKNOWN INDICATION
  5. PARACETAMOL [Concomitant]
     Indication: DRUG USE FOR UNKNOWN INDICATION
  6. THYROXINE [Concomitant]
     Indication: DRUG USE FOR UNKNOWN INDICATION

REACTIONS (1)
  - RHEUMATOID NODULE [None]
